FAERS Safety Report 7268600-1 (Version None)
Quarter: 2010Q4

REPORT INFORMATION
  Report Type: 
  Country: None (occurrence: None)
  Receive Date: 20101206
  Receipt Date: 20100913
  Transmission Date: 20110411
  Serious: No
  Sender: FDA-Public Use
  Company Number: 2010SP049375

PATIENT
  Age: 40 Year
  Sex: Female

DRUGS (3)
  1. SAPHRIS [Suspect]
     Indication: PRODUCT USED FOR UNKNOWN INDICATION
     Dosage: SL
     Route: 060
  2. LISINOPRIL [Concomitant]
  3. SEROQUEL [Concomitant]

REACTIONS (1)
  - BLOOD PRESSURE INCREASED [None]
